FAERS Safety Report 10242777 (Version 1)
Quarter: 2014Q2

REPORT INFORMATION
  Report Type: Spontaneous
  Country: PT (occurrence: PT)
  Receive Date: 20140617
  Receipt Date: 20140617
  Transmission Date: 20141212
  Serious: Yes (Hospitalization)
  Sender: FDA-Public Use
  Company Number: PHHY2014PT072521

PATIENT
  Age: 68 Year
  Sex: Female

DRUGS (4)
  1. SIMVASTATIN [Suspect]
  2. TRIHEXYPHENIDYL [Interacting]
  3. ANTIDEPRESSANTS [Interacting]
  4. BENZODIAZEPINES [Interacting]

REACTIONS (7)
  - Disturbance in attention [Recovered/Resolved]
  - Bradyphrenia [Recovered/Resolved]
  - Apraxia [Recovered/Resolved]
  - Hyperreflexia [Recovered/Resolved]
  - Myoclonus [Recovered/Resolved]
  - Drug interaction [Recovered/Resolved]
  - Disorientation [Recovered/Resolved]
